FAERS Safety Report 10156415 (Version 4)
Quarter: 2014Q3

REPORT INFORMATION
  Report Type: Report from Study
  Country: CA (occurrence: CA)
  Receive Date: 20140507
  Receipt Date: 20140909
  Transmission Date: 20150326
  Serious: Yes (Other)
  Sender: FDA-Public Use
  Company Number: CA-ALEXION PHARMACEUTICALS INC.-A201401622

PATIENT
  Age: 76 Year
  Weight: 51 kg

DRUGS (13)
  1. AMLODIPIN                          /00972401/ [Concomitant]
     Active Substance: AMLODIPINE BESYLATE
     Indication: HYPERTENSION
     Dosage: 5 MG, BID
     Route: 048
     Dates: start: 20140117
  2. NEPHROTRANS [Concomitant]
     Indication: ACIDOSIS
     Dosage: 500 MG, UNK
     Route: 048
     Dates: start: 20140114
  3. FRAGMIN [Concomitant]
     Active Substance: DALTEPARIN SODIUM
     Indication: PROPHYLAXIS
     Dosage: UNK
     Route: 058
     Dates: start: 20140114
  4. URBASON                            /00049601/ [Concomitant]
     Active Substance: METHYLPREDNISOLONE
     Indication: ADRENOCORTICAL STEROID THERAPY
     Dosage: 12.5 MG, UNK
     Route: 042
     Dates: start: 20140121, end: 20140121
  5. DELIX                              /00885601/ [Concomitant]
     Dosage: UNK
  6. ECULIZUMAB [Suspect]
     Active Substance: ECULIZUMAB
     Dosage: 1200 MG, Q2W
     Route: 042
     Dates: start: 20140218
  7. LASIX [Concomitant]
     Active Substance: FUROSEMIDE
     Indication: POLYURIA
     Dosage: 80 MG, UNK
     Route: 042
     Dates: start: 20140121, end: 20140121
  8. DELIX                              /00885601/ [Concomitant]
     Indication: HYPERTENSION
     Dosage: 2.5 MG, QD
     Route: 048
     Dates: start: 20140114
  9. ECULIZUMAB [Suspect]
     Active Substance: ECULIZUMAB
     Indication: HAEMOLYTIC URAEMIC SYNDROME
     Dosage: 900 MG, QW X 4 TIMES
     Route: 042
     Dates: start: 20140121, end: 20140211
  10. TOREM                              /01036501/ [Concomitant]
     Active Substance: TORSEMIDE
     Indication: POLYURIA
     Dosage: 10 MG, UNK
     Route: 048
     Dates: start: 20140113, end: 20140113
  11. TOREM                              /01036501/ [Concomitant]
     Active Substance: TORSEMIDE
     Dosage: 10 UNK, UNK
     Route: 048
     Dates: start: 20140122
  12. SERTRALINE [Concomitant]
     Active Substance: SERTRALINE HYDROCHLORIDE
     Indication: PROPHYLAXIS
     Dosage: 50 MG, UNK
     Route: 048
     Dates: start: 20131026
  13. STEROFUNDIN [Concomitant]
     Indication: IMMUNISATION
     Dosage: 1000 ML, UNK
     Route: 042
     Dates: start: 20140117, end: 20140121

REACTIONS (2)
  - Pleural effusion [Not Recovered/Not Resolved]
  - Hypervolaemia [Not Recovered/Not Resolved]

NARRATIVE: CASE EVENT DATE: 20140424
